FAERS Safety Report 25180073 (Version 3)
Quarter: 2025Q2

REPORT INFORMATION
  Report Type: Spontaneous
  Country: US (occurrence: US)
  Receive Date: 20250409
  Receipt Date: 20250528
  Transmission Date: 20250716
  Serious: No
  Sender: MYLAN
  Company Number: US-MYLANLABS-2025M1028859

PATIENT
  Age: 72 Year
  Sex: Female

DRUGS (1)
  1. BREYNA [Suspect]
     Active Substance: BUDESONIDE\FORMOTEROL FUMARATE
     Indication: Product used for unknown indication

REACTIONS (3)
  - Circumstance or information capable of leading to medication error [Unknown]
  - Device malfunction [Unknown]
  - Product use complaint [Unknown]

NARRATIVE: CASE EVENT DATE: 20250101
